FAERS Safety Report 8232059-8 (Version None)
Quarter: 2012Q1

REPORT INFORMATION
  Report Type: 
  Country: None (occurrence: None)
  Receive Date: 20120323
  Receipt Date: 20120312
  Transmission Date: 20120608
  Serious: Yes (Hospitalization)
  Sender: FDA-Public Use
  Company Number: JP-MERCK-1203USA01210

PATIENT
  Age: 74 Year
  Sex: Male
  Weight: 63 kg

DRUGS (11)
  1. AMARYL [Concomitant]
     Indication: DIABETES MELLITUS
     Route: 048
     Dates: start: 20080101
  2. CRESTOR [Concomitant]
     Indication: DYSLIPIDAEMIA
     Route: 048
     Dates: start: 20080101
  3. GLUCOBAY [Concomitant]
     Indication: DIABETES MELLITUS
     Route: 048
     Dates: start: 20080101
  4. METHYCOBAL [Concomitant]
     Route: 048
     Dates: start: 20080101
  5. CELECOXIB [Concomitant]
     Route: 048
     Dates: start: 20080101
  6. JANUVIA [Suspect]
     Indication: DIABETES MELLITUS
     Route: 048
     Dates: start: 20120131, end: 20120214
  7. SODIUM BICARBONATE [Concomitant]
     Route: 048
  8. MUCOSTA [Concomitant]
     Route: 048
     Dates: start: 20080101
  9. ALLOPURINOL [Concomitant]
     Indication: HYPERURICAEMIA
     Route: 048
     Dates: start: 20080101
  10. PLETAL [Concomitant]
     Route: 048
     Dates: start: 20080101
  11. PEPCID [Concomitant]
     Route: 048

REACTIONS (3)
  - HEPATIC ENZYME INCREASED [None]
  - PYREXIA [None]
  - INFLAMMATION [None]
